FAERS Safety Report 21283309 (Version 1)
Quarter: 2022Q3

REPORT INFORMATION
  Report Type: Spontaneous
  Country: US (occurrence: None)
  Receive Date: 20220830
  Receipt Date: 20220830
  Transmission Date: 20221026
  Serious: Yes (Life-Threatening, Disabling, Other)
  Sender: FDA-Public Use
  Company Number: None

PATIENT
  Age: 59 Year
  Sex: Female
  Weight: 56 kg

DRUGS (3)
  1. PLATELET RICH PLASMA [Suspect]
     Active Substance: PLATELET RICH PLASMA
  2. compounded T4 [Concomitant]
  3. LIOTHYRONINE SODIUM [Concomitant]
     Active Substance: LIOTHYRONINE SODIUM

REACTIONS (16)
  - Weight increased [None]
  - Autonomic neuropathy [None]
  - Constipation [None]
  - Hypertension [None]
  - Malaise [None]
  - Alopecia [None]
  - Confusional state [None]
  - Dementia [None]
  - Vomiting [None]
  - Malnutrition [None]
  - Dehydration [None]
  - Starvation [None]
  - Feeding disorder [None]
  - Decreased activity [None]
  - Gastrointestinal infection [None]
  - Hernia [None]

NARRATIVE: CASE EVENT DATE: 20210415
